FAERS Safety Report 16980032 (Version 3)
Quarter: 2020Q4

REPORT INFORMATION
  Report Type: Spontaneous
  Country: BR (occurrence: BR)
  Receive Date: 20191031
  Receipt Date: 20201006
  Transmission Date: 20210113
  Serious: Yes (Hospitalization, Other)
  Sender: FDA-Public Use
  Company Number: BR-BAYER-2019-191428

PATIENT
  Age: 33 Year
  Sex: Female
  Weight: 65 kg

DRUGS (2)
  1. MIRENA [Suspect]
     Active Substance: LEVONORGESTREL
     Indication: CONTRACEPTION
     Dosage: 20 MCG/24HR, CONT
     Route: 015
     Dates: start: 20180523, end: 20190920
  2. MIRENA [Suspect]
     Active Substance: LEVONORGESTREL
     Indication: ENDOMETRIOSIS

REACTIONS (8)
  - Pain in extremity [Recovered/Resolved]
  - Arthralgia [Recovered/Resolved]
  - Basedow^s disease [Not Recovered/Not Resolved]
  - Palpitations [None]
  - Drug hypersensitivity [None]
  - Neck pain [Recovered/Resolved]
  - Alopecia [None]
  - Muscle spasms [None]

NARRATIVE: CASE EVENT DATE: 201805
